FAERS Safety Report 8319287-8 (Version None)
Quarter: 2012Q2

REPORT INFORMATION
  Report Type: 
  Country: None (occurrence: None)
  Receive Date: 20120427
  Receipt Date: 20100105
  Transmission Date: 20120825
  Serious: No
  Sender: FDA-Public Use
  Company Number: US-TEVA-2009010272

PATIENT
  Sex: Female
  Weight: 51.756 kg

DRUGS (6)
  1. ZOLPIDEM [Concomitant]
  2. ATENOLOL [Concomitant]
  3. NUVIGIL [Suspect]
     Indication: NARCOLEPSY
     Dosage: 75 MILLIGRAM;
     Route: 048
     Dates: start: 20090906, end: 20090908
  4. BIRTH CONTROL PILL [Concomitant]
  5. CITALOPRAM HYDROBROMIDE [Concomitant]
  6. NUVIGIL [Suspect]
     Indication: CATAPLEXY

REACTIONS (3)
  - ANXIETY [None]
  - AGITATION [None]
  - PANIC REACTION [None]
